FAERS Safety Report 4892643-6 (Version None)
Quarter: 2006Q1

REPORT INFORMATION
  Report Type: 
  Country: None (occurrence: None)
  Receive Date: 20060126
  Receipt Date: 20060117
  Transmission Date: 20060701
  Serious: Yes (Other)
  Sender: FDA-Public Use
  Company Number: US-AMGEN-US165242

PATIENT
  Sex: Male

DRUGS (11)
  1. EPOGEN [Suspect]
     Indication: DIALYSIS
     Route: 042
     Dates: start: 20050101, end: 20051216
  2. LANTUS [Concomitant]
  3. HUMALOG [Concomitant]
  4. HYDROCORTISONE [Concomitant]
  5. BENICAR [Concomitant]
  6. SENSIPAR [Concomitant]
     Indication: HYPERPARATHYROIDISM SECONDARY
  7. FLORINEF [Concomitant]
  8. LEVOTHYROXINE SODIUM [Concomitant]
  9. NORVASC [Concomitant]
  10. LUNESTA [Concomitant]
  11. HYDROCODONE BITARTRATE [Concomitant]

REACTIONS (1)
  - APLASIA PURE RED CELL [None]
